FAERS Safety Report 6265422-5 (Version None)
Quarter: 2009Q3

REPORT INFORMATION
  Report Type: 
  Country: None (occurrence: None)
  Receive Date: 20090713
  Receipt Date: 20090702
  Transmission Date: 20100115
  Serious: Yes (Other)
  Sender: FDA-Public Use
  Company Number: JP-ASTRAZENECA-2009SE04355

PATIENT
  Age: 65 Year
  Weight: 45 kg

DRUGS (3)
  1. SEROQUEL [Suspect]
     Indication: SEDATION
     Route: 048
     Dates: start: 20090109, end: 20090120
  2. VEGETAMIN B [Concomitant]
  3. RESLIN [Concomitant]

REACTIONS (1)
  - LIVER DISORDER [None]
